FAERS Safety Report 11857781 (Version 1)
Quarter: 2015Q4

REPORT INFORMATION
  Report Type: Spontaneous
  Country: None (occurrence: None)
  Receive Date: 20151221
  Receipt Date: 20151221
  Transmission Date: 20160305
  Serious: Yes (Hospitalization)
  Sender: FDA-Public Use
  Company Number: None

PATIENT
  Age: 38 Year
  Sex: Female
  Weight: 68.04 kg

DRUGS (2)
  1. MAGNESIUM [Concomitant]
     Active Substance: MAGNESIUM
  2. BACTRIM DS [Suspect]
     Active Substance: SULFAMETHOXAZOLE\TRIMETHOPRIM
     Indication: ARTHROPOD BITE
     Dosage: 20     TWICE DAILY  TAKEN BY MOUTH
     Route: 048
     Dates: start: 20150105, end: 20150108

REACTIONS (3)
  - Delirium [None]
  - Confusional state [None]
  - Hallucination [None]

NARRATIVE: CASE EVENT DATE: 20150108
